FAERS Safety Report 14143457 (Version 1)
Quarter: 2017Q4

REPORT INFORMATION
  Report Type: Spontaneous
  Country: GB (occurrence: GB)
  Receive Date: 20171030
  Receipt Date: 20171030
  Transmission Date: 20180321
  Serious: Yes (Other)
  Sender: FDA-Public Use
  Company Number: GB-MYLANLABS-2017M1067693

PATIENT
  Age: 76 Year
  Sex: Female

DRUGS (5)
  1. VITAMIN D [Concomitant]
     Active Substance: CHOLECALCIFEROL
  2. BISOPROLOL [Suspect]
     Active Substance: BISOPROLOL
     Indication: PRODUCT USED FOR UNKNOWN INDICATION
  3. SOTALOL. [Suspect]
     Active Substance: SOTALOL
     Indication: HEART RATE INCREASED
     Dates: start: 201709
  4. SOTALOL. [Suspect]
     Active Substance: SOTALOL
     Indication: ATRIAL FLUTTER
  5. APIXABAN [Concomitant]
     Active Substance: APIXABAN
     Indication: ANTICOAGULANT THERAPY

REACTIONS (10)
  - Visual impairment [Unknown]
  - Atrial flutter [Unknown]
  - Headache [Unknown]
  - Disturbance in attention [Unknown]
  - Malaise [Unknown]
  - Drug ineffective [Unknown]
  - Fatigue [Unknown]
  - Heart rate decreased [Recovered/Resolved]
  - Aura [Unknown]
  - Migraine [Recovering/Resolving]
